FAERS Safety Report 14397505 (Version 1)
Quarter: 2018Q1

REPORT INFORMATION
  Report Type: Spontaneous
  Country: US (occurrence: US)
  Receive Date: 20180116
  Receipt Date: 20180116
  Transmission Date: 20180509
  Serious: No
  Sender: FDA-Public Use
  Company Number: US-ALLERGAN-1729761US

PATIENT

DRUGS (1)
  1. BOTOX COSMETIC [Suspect]
     Active Substance: ONABOTULINUMTOXINA
     Indication: PRODUCT USED FOR UNKNOWN INDICATION
     Dosage: UNK, SINGLE
     Route: 030

REACTIONS (7)
  - Urticaria [Unknown]
  - Nausea [Unknown]
  - Angioedema [Unknown]
  - Injection site pain [Unknown]
  - Injection site mass [Unknown]
  - Headache [Unknown]
  - Injection site swelling [Unknown]
